FAERS Safety Report 18078270 (Version 5)
Quarter: 2021Q1

REPORT INFORMATION
  Report Type: Report from Study
  Country: CO (occurrence: CO)
  Receive Date: 20200727
  Receipt Date: 20210106
  Transmission Date: 20210419
  Serious: Yes (Hospitalization, Other)
  Sender: FDA-Public Use
  Company Number: NVSC2020CO209627

PATIENT
  Age: 22 Year
  Sex: Male
  Weight: 68 kg

DRUGS (4)
  1. VITAMIN B [Concomitant]
     Active Substance: VITAMIN B
     Indication: PRODUCT USED FOR UNKNOWN INDICATION
     Dosage: UNK, QD (2 MONTHS AGO)
     Route: 048
  2. FILGRASTIM [Concomitant]
     Active Substance: FILGRASTIM
     Indication: APLASTIC ANAEMIA
     Dosage: UNK (STARTED 2 MONTHS AGO AND STPPED MORE THAN ONE MONTH AGO)
     Route: 030
  3. REVOLADE [Suspect]
     Active Substance: ELTROMBOPAG OLAMINE
     Indication: APLASTIC ANAEMIA
     Dosage: 150 MG, QD
     Route: 048
     Dates: start: 20200328, end: 202007
  4. FOLIC ACID. [Concomitant]
     Active Substance: FOLIC ACID
     Indication: PRODUCT USED FOR UNKNOWN INDICATION
     Dosage: 7 MG, QD (2 MONTHS AGO)
     Route: 048

REACTIONS (7)
  - Gingival bleeding [Unknown]
  - Dizziness [Unknown]
  - Haemoglobin decreased [Recovering/Resolving]
  - Platelet count decreased [Recovering/Resolving]
  - Decreased immune responsiveness [Unknown]
  - Fatigue [Unknown]
  - Haemorrhage [Unknown]

NARRATIVE: CASE EVENT DATE: 202007
